FAERS Safety Report 8922126 (Version 5)
Quarter: 2013Q2

REPORT INFORMATION
  Report Type: Report from Study
  Country: CA (occurrence: CA)
  Receive Date: 20121123
  Receipt Date: 20130426
  Transmission Date: 20140414
  Serious: Yes (Death, Other)
  Sender: FDA-Public Use
  Company Number: PHHY2012CA106478

PATIENT
  Age: 73 Year
  Sex: Male

DRUGS (8)
  1. SANDOSTATIN LAR [Suspect]
     Indication: CARCINOID SYNDROME
     Dosage: 20 MG, EVERY 2 WEEKS
     Route: 030
     Dates: start: 19980101
  2. SANDOSTATIN LAR [Suspect]
     Dosage: 30 MG, EVERY 2 WEEKS
     Route: 030
     Dates: start: 201102
  3. SANDOSTATIN LAR [Suspect]
     Dosage: 20 MG,EVERY 2 WEEKS
     Route: 030
     Dates: end: 20130411
  4. SYNTHROID [Concomitant]
  5. DENOSUMAB [Concomitant]
  6. SODIUM BICARBONATE [Concomitant]
  7. ALLOPURINOL [Concomitant]
  8. VIT D [Concomitant]
     Dosage: 10000 DF, UNK

REACTIONS (8)
  - Death [Fatal]
  - Muscle atrophy [Unknown]
  - Weight decreased [Unknown]
  - Malignant neoplasm progression [Unknown]
  - Metastases to bone [Unknown]
  - Metastases to liver [Unknown]
  - Jaundice [Unknown]
  - Steatorrhoea [Unknown]
